FAERS Safety Report 4765299-0 (Version None)
Quarter: 2005Q3

REPORT INFORMATION
  Report Type: 
  Country: None (occurrence: None)
  Receive Date: 20050909
  Receipt Date: 20050309
  Transmission Date: 20060218
  Serious: Yes (Hospitalization, Disabling)
  Sender: FDA-Public Use
  Company Number: US-MERCK-0503USA01933

PATIENT
  Age: 48 Year
  Sex: Male
  Weight: 82 kg

DRUGS (5)
  1. VIOXX [Suspect]
     Indication: RHEUMATOID ARTHRITIS
     Route: 048
     Dates: start: 20001003, end: 20030228
  2. VIOXX [Suspect]
     Indication: BACK PAIN
     Route: 048
     Dates: start: 20001003, end: 20030228
  3. MOTRIN [Concomitant]
     Route: 065
     Dates: start: 19990101, end: 20030606
  4. TESTOSTERONE [Concomitant]
     Route: 065
     Dates: start: 20010101
  5. NEXIUM [Concomitant]
     Route: 065

REACTIONS (20)
  - BLOOD TRIGLYCERIDES INCREASED [None]
  - CARDIAC DISORDER [None]
  - CARDIAC FLUTTER [None]
  - CARDIAC MURMUR [None]
  - CHEST PAIN [None]
  - CORONARY ARTERY DISEASE [None]
  - CYST [None]
  - DYSPHAGIA [None]
  - EJECTION FRACTION DECREASED [None]
  - GRANULOMA ANNULARE [None]
  - HAEMATOCHEZIA [None]
  - HEART DISEASE CONGENITAL [None]
  - HYPOKINESIA [None]
  - LENTIGO [None]
  - MYOCARDIAL INFARCTION [None]
  - PLANTAR FASCIITIS [None]
  - SEBORRHOEIC KERATOSIS [None]
  - SINUS TACHYCARDIA [None]
  - SYNCOPE VASOVAGAL [None]
  - VOMITING [None]
